FAERS Safety Report 8904645 (Version 1)
Quarter: 2012Q4

REPORT INFORMATION
  Report Type: 
  Country: NL (occurrence: NL)
  Receive Date: 20121113
  Receipt Date: 20121113
  Transmission Date: 20130627
  Serious: Yes (Death)
  Sender: FDA-Public Use
  Company Number: PHHY2012NL103807

PATIENT
  Sex: Female

DRUGS (2)
  1. TOBI PODHALER [Suspect]
  2. COMBIVENT [Concomitant]

REACTIONS (1)
  - Death [Fatal]
